FAERS Safety Report 23216094 (Version 1)
Quarter: 2023Q4

REPORT INFORMATION
  Report Type: Spontaneous
  Country: FR (occurrence: None)
  Receive Date: 20231122
  Receipt Date: 20231122
  Transmission Date: 20240110
  Serious: Yes (Hospitalization, Other)
  Sender: FDA-Public Use
  Company Number: FR-Unichem Pharmaceuticals (USA) Inc-UCM202311-001433

PATIENT
  Age: 25 Year
  Sex: Male
  Weight: 66 kg

DRUGS (4)
  1. BISOPROLOL FUMARATE [Suspect]
     Active Substance: BISOPROLOL FUMARATE
     Indication: Myocarditis
     Route: 048
     Dates: start: 202204, end: 2023
  2. PEGASYS [Suspect]
     Active Substance: PEGINTERFERON ALFA-2A
     Indication: Polycythaemia vera
     Dates: start: 2018, end: 202211
  3. RAMIPRIL [Suspect]
     Active Substance: RAMIPRIL
     Indication: Myocarditis
     Route: 048
     Dates: start: 202204, end: 2023
  4. Previscan [Concomitant]
     Indication: Myocarditis
     Dosage: 0.75 DF
     Route: 048

REACTIONS (3)
  - Pleural effusion [Recovered/Resolved with Sequelae]
  - Organising pneumonia [Recovered/Resolved with Sequelae]
  - Off label use [Unknown]

NARRATIVE: CASE EVENT DATE: 20180101
